FAERS Safety Report 8777711 (Version 1)
Quarter: 2012Q4

REPORT INFORMATION
  Report Type: 
  Country: FR (occurrence: FR)
  Receive Date: 20120910
  Receipt Date: 20120910
  Transmission Date: 20130627
  Serious: Yes (Death)
  Sender: FDA-Public Use
  Company Number: FR-ASTRAZENECA-2012SE70328

PATIENT
  Sex: Female

DRUGS (6)
  1. XEROQUEL [Suspect]
     Indication: BIPOLAR I DISORDER
     Route: 048
  2. TEGRETOL [Concomitant]
  3. TERCIAN [Concomitant]
  4. TERALENE [Concomitant]
  5. DEPAKOTE [Concomitant]
  6. STILNOX [Concomitant]

REACTIONS (3)
  - Intestinal obstruction [Fatal]
  - Faecal vomiting [Fatal]
  - Mendelson^s syndrome [Fatal]
